FAERS Safety Report 9422937 (Version 1)
Quarter: 2013Q3

REPORT INFORMATION
  Report Type: Spontaneous
  Country: GB (occurrence: GB)
  Receive Date: 20130726
  Receipt Date: 20130726
  Transmission Date: 20140515
  Serious: Yes (Other)
  Sender: FDA-Public Use
  Company Number: GB-ACTAVIS-2013-13078

PATIENT
  Age: 59 Year
  Sex: Female

DRUGS (1)
  1. PARACETAMOL (UNKNOWN) [Suspect]
     Indication: NASOPHARYNGITIS
     Dosage: 1000 MG, QID
     Route: 048
     Dates: start: 20130620, end: 20130622

REACTIONS (1)
  - Dyspnoea [Recovered/Resolved]
